FAERS Safety Report 6576898-8 (Version None)
Quarter: 2010Q1

REPORT INFORMATION
  Report Type: 
  Country: None (occurrence: None)
  Receive Date: 20100210
  Receipt Date: 20100203
  Transmission Date: 20100710
  Serious: Yes (Hospitalization, Disabling, Other)
  Sender: FDA-Public Use
  Company Number: B0617298A

PATIENT
  Sex: Male

DRUGS (31)
  1. EPZICOM [Suspect]
     Indication: ACQUIRED IMMUNODEFICIENCY SYNDROME
     Route: 048
     Dates: start: 20060606
  2. ISENTRESS [Suspect]
     Indication: ACQUIRED IMMUNODEFICIENCY SYNDROME
     Route: 048
     Dates: start: 20080908
  3. REYATAZ [Concomitant]
     Indication: ACQUIRED IMMUNODEFICIENCY SYNDROME
     Route: 048
     Dates: start: 20070619, end: 20080802
  4. PAXIL [Concomitant]
     Indication: PANIC DISORDER
     Dosage: 10MG PER DAY
     Route: 048
     Dates: end: 20080802
  5. LENDORMIN [Concomitant]
     Indication: PANIC DISORDER
     Route: 048
     Dates: end: 20080802
  6. GASTER [Concomitant]
     Dosage: 10MG TWICE PER DAY
     Route: 048
     Dates: end: 20080802
  7. GASTER [Concomitant]
     Dosage: 20MG PER DAY
     Route: 048
     Dates: start: 20080919, end: 20090331
  8. CIPROXAN [Concomitant]
     Indication: EPIDIDYMITIS
     Dosage: 300MG TWICE PER DAY
     Route: 042
     Dates: start: 20081020, end: 20081030
  9. NOVOLIN N [Concomitant]
     Indication: DIABETES MELLITUS
     Dosage: 5IU PER DAY
     Dates: end: 20080510
  10. NOVOLIN N [Concomitant]
     Dosage: 6IU PER DAY
     Dates: start: 20090129, end: 20090203
  11. NOVOLIN R [Concomitant]
     Indication: DIABETES MELLITUS
     Dosage: 14IU TWICE PER DAY
     Dates: end: 20080510
  12. NOVOLIN R [Concomitant]
     Dosage: 15IU TWICE PER DAY
     Dates: start: 20080824, end: 20081025
  13. NOVOLIN R [Concomitant]
     Dosage: 9IU THREE TIMES PER DAY
     Dates: start: 20090130, end: 20090220
  14. NOVOLIN R [Concomitant]
     Dosage: 20IU THREE TIMES PER DAY
     Dates: start: 20090305, end: 20090325
  15. RECOMBINATE [Concomitant]
     Indication: FACTOR VIII DEFICIENCY
     Dosage: 1IU3 TWO TIMES PER WEEK
     Dates: start: 20080205, end: 20080803
  16. HUMALOG MIX [Concomitant]
     Indication: DIABETES MELLITUS
     Dosage: 16IU TWICE PER DAY
     Route: 058
     Dates: start: 20080511, end: 20080802
  17. HUMALOG MIX [Concomitant]
     Dosage: 18IU THREE TIMES PER DAY
     Route: 058
     Dates: start: 20081110, end: 20081207
  18. LEVEMIR [Concomitant]
     Indication: DIABETES MELLITUS
     Dosage: 5IU PER DAY
     Route: 058
     Dates: start: 20080723, end: 20080802
  19. LEVEMIR [Concomitant]
     Dosage: 8IU PER DAY
     Route: 058
     Dates: start: 20080824, end: 20081109
  20. HUMULIN R [Concomitant]
     Indication: DIABETES MELLITUS
     Route: 058
     Dates: start: 20080817, end: 20080823
  21. HUMALOG [Concomitant]
     Indication: DIABETES MELLITUS
     Dosage: 8IU TWICE PER DAY
     Route: 058
     Dates: start: 20081026, end: 20081109
  22. HUMALOG [Concomitant]
     Dosage: 17IU TWICE PER DAY
     Route: 058
     Dates: start: 20081208, end: 20090130
  23. HUMALOG [Concomitant]
     Dosage: 20IU THREE TIMES PER DAY
     Route: 058
     Dates: start: 20090221, end: 20090304
  24. LANTUS [Concomitant]
     Indication: DIABETES MELLITUS
     Dosage: 16IU PER DAY
     Route: 058
     Dates: start: 20081208, end: 20090128
  25. LANTUS [Concomitant]
     Dosage: 10IU PER DAY
     Route: 058
     Dates: start: 20090204, end: 20090327
  26. OMEPRAL [Concomitant]
     Dosage: 20MG TWICE PER DAY
     Route: 065
     Dates: start: 20080911, end: 20080918
  27. RISPERDAL [Concomitant]
     Indication: PANIC DISORDER
     Dosage: 1MG TWICE PER DAY
     Route: 065
     Dates: start: 20090212
  28. LACTULOSE [Concomitant]
     Indication: HEPATITIS C
     Dosage: 200MG THREE TIMES PER DAY
     Route: 048
     Dates: start: 20090112, end: 20090312
  29. FUROSEMIDE [Concomitant]
     Indication: HEPATITIS C
     Dosage: 20MG PER DAY
     Route: 065
     Dates: start: 20090129
  30. UNKNOWN DRUG [Concomitant]
     Indication: FACTOR VIII DEFICIENCY
     Dosage: 1500IU TWICE PER DAY
     Dates: start: 20080804, end: 20080921
  31. LACTULOSE [Concomitant]
     Dosage: 30ML THREE TIMES PER DAY
     Route: 048
     Dates: start: 20090313

REACTIONS (17)
  - ABASIA [None]
  - ABDOMINAL SYMPTOM [None]
  - ATRIOVENTRICULAR BLOCK [None]
  - CEREBRAL ARTERY STENOSIS [None]
  - CEREBRAL INFARCTION [None]
  - DEMENTIA [None]
  - DEPRESSED LEVEL OF CONSCIOUSNESS [None]
  - DEPRESSION [None]
  - EATING DISORDER [None]
  - FEMUR FRACTURE [None]
  - GENERAL PHYSICAL HEALTH DETERIORATION [None]
  - HAEMARTHROSIS [None]
  - HAEMOPHILIC ARTHROPATHY [None]
  - HEMIPLEGIA [None]
  - HYPERTENSION [None]
  - ILL-DEFINED DISORDER [None]
  - RENAL FAILURE ACUTE [None]
